FAERS Safety Report 6125399-X (Version None)
Quarter: 2009Q1

REPORT INFORMATION
  Report Type: 
  Country: None (occurrence: None)
  Receive Date: 20090316
  Receipt Date: 20090302
  Transmission Date: 20090719
  Serious: Yes (Hospitalization, Other)
  Sender: FDA-Public Use
  Company Number: 2009S1002893

PATIENT
  Age: 74 Year
  Sex: Male

DRUGS (13)
  1. SPIRONOLACTONE [Suspect]
  2. ENALAPRIL MALEATE [Suspect]
  3. WARFARIN SODIUM [Suspect]
     Indication: THROMBOSIS PROPHYLAXIS
     Dosage: 6 MG; DAILY; ORAL
     Route: 048
     Dates: start: 20080523
  4. INVESTIGATIONAL DRUG (INVESTIGATIONAL DRUG) [Suspect]
     Indication: THROMBOSIS PROPHYLAXIS
     Dosage: 10 MG;DAILY
  5. CARVEDILOL (CON.) [Concomitant]
  6. SODIUM BICARBONATE (CON.) [Concomitant]
  7. CALCIUM RESONIUM (CON.) [Concomitant]
  8. TORASEMIDE (CON.) [Concomitant]
  9. GTN SPRAY (CON.) [Concomitant]
  10. VITAMIN B 12 (CYANOCOBALAMIN AND ANALOGUES) (CON.) [Concomitant]
  11. LEVOTHYROXINE (CON.) [Concomitant]
  12. ALLOPURINOL (CON.) [Concomitant]
  13. SIMVASTATIN (CON.) [Concomitant]

REACTIONS (4)
  - BLOOD CREATININE INCREASED [None]
  - HYPERKALAEMIA [None]
  - LOWER RESPIRATORY TRACT INFECTION [None]
  - TROPONIN INCREASED [None]
